FAERS Safety Report 10389798 (Version 5)
Quarter: 2014Q4

REPORT INFORMATION
  Report Type: Report from Study
  Country: CH (occurrence: CH)
  Receive Date: 20140818
  Receipt Date: 20141113
  Transmission Date: 20150528
  Serious: Yes (Death, Hospitalization)
  Sender: FDA-Public Use
  Company Number: CH-BAYER-2013-150534

PATIENT
  Age: 76 Year
  Sex: Male
  Weight: 54 kg

DRUGS (7)
  1. OMEPRAZOL [Concomitant]
     Active Substance: OMEPRAZOLE
     Indication: HYPERCHLORHYDRIA
     Dosage: TOTAL DAILY DOSE 40 MG (1-0-0)
     Route: 048
     Dates: start: 20130814, end: 20131130
  2. RADIUM-223 DICHLORIDE [Suspect]
     Active Substance: RADIUM RA-223 DICHLORIDE
     Indication: PROSTATE CANCER METASTATIC
     Dosage: 2.75 MBQ, UNK
     Route: 042
     Dates: start: 20130911, end: 20130911
  3. DAFALGAN [Concomitant]
     Active Substance: ACETAMINOPHEN
     Indication: PAIN
     Dosage: 1G (1-1-1-1)
     Route: 048
     Dates: start: 20130814, end: 20131130
  4. RADIUM-223 DICHLORIDE [Suspect]
     Active Substance: RADIUM RA-223 DICHLORIDE
     Indication: METASTASES TO BONE
     Dosage: 2.95 MBQ, UNK
     Route: 042
     Dates: start: 20131009, end: 20131009
  5. RADIUM-223 DICHLORIDE [Suspect]
     Active Substance: RADIUM RA-223 DICHLORIDE
     Indication: PROSTATE CANCER METASTATIC
     Dosage: 2.75 MBQ, UNK
     Route: 042
     Dates: start: 20131106, end: 20131106
  6. MARCUMAR [Concomitant]
     Active Substance: PHENPROCOUMON
     Indication: HYPERTENSION
     Dosage: 3MG (1-0-0-0)
     Route: 048
     Dates: start: 20130814, end: 20131130
  7. TARGIN [Concomitant]
     Active Substance: NALOXONE HYDROCHLORIDE\OXYCODONE HYDROCHLORIDE
     Indication: PAIN
     Dosage: 10MG (1-0-1)
     Route: 048
     Dates: start: 20130905, end: 20131130

REACTIONS (2)
  - General physical health deterioration [Fatal]
  - General physical health deterioration [Recovered/Resolved]

NARRATIVE: CASE EVENT DATE: 20130924
